FAERS Safety Report 7824565-2 (Version None)
Quarter: 2011Q4

REPORT INFORMATION
  Report Type: 
  Country: None (occurrence: None)
  Receive Date: 20111019
  Receipt Date: 20111005
  Transmission Date: 20120403
  Serious: Yes (Hospitalization)
  Sender: FDA-Public Use
  Company Number: US-ELI_LILLY_AND_COMPANY-US201110002213

PATIENT
  Age: 83 Year
  Sex: Male

DRUGS (10)
  1. ARICEPT [Concomitant]
  2. ZYPREXA [Suspect]
     Indication: AGITATION
     Dosage: UNK
  3. DEPAKOTE [Concomitant]
  4. AVELOX [Concomitant]
  5. TRAZODONE HYDROCHLORIDE [Concomitant]
  6. ZYPREXA ZYDIS [Suspect]
     Indication: AGITATION
  7. REMERON [Concomitant]
  8. SYNTHROID [Concomitant]
  9. PROSCAR [Concomitant]
  10. DUONEB [Concomitant]
     Dosage: UNK

REACTIONS (4)
  - DRUG EFFECT DELAYED [None]
  - HYPONATRAEMIA [None]
  - OFF LABEL USE [None]
  - PNEUMONIA [None]
